FAERS Safety Report 7354491-7 (Version None)
Quarter: 2011Q1

REPORT INFORMATION
  Report Type: 
  Country: None (occurrence: None)
  Receive Date: 20110316
  Receipt Date: 20110308
  Transmission Date: 20110831
  Serious: Yes (Other)
  Sender: FDA-Public Use
  Company Number: JP-ASTELLAS-2011JP001732

PATIENT
  Age: 72 Year
  Sex: Female

DRUGS (8)
  1. METHYLPREDNISOLONE [Concomitant]
     Dosage: 125 MG, UNKNOWN/D
     Route: 065
  2. PROGRAF [Suspect]
     Route: 048
  3. PROGRAF [Suspect]
     Indication: IDIOPATHIC PULMONARY FIBROSIS
     Dosage: UNK
     Route: 041
  4. PREDNISOLONE [Concomitant]
     Indication: IDIOPATHIC PULMONARY FIBROSIS
     Dosage: 1 MG/KG, UNKNOWN/D
     Route: 048
  5. METHYLPREDNISOLONE [Concomitant]
     Dosage: 80 MG, UNKNOWN/D
     Route: 065
  6. METHYLPREDNISOLONE [Concomitant]
     Indication: IDIOPATHIC PULMONARY FIBROSIS
     Dosage: 1000 MG, UNKNOWN/D
     Route: 065
  7. METHYLPREDNISOLONE [Concomitant]
     Dosage: 500 MG, UNKNOWN/D
     Route: 065
  8. METHYLPREDNISOLONE [Concomitant]
     Dosage: 250 MG, UNKNOWN/D
     Route: 065

REACTIONS (2)
  - FUNGAL SKIN INFECTION [None]
  - OFF LABEL USE [None]
